FAERS Safety Report 5916061-4 (Version None)
Quarter: 2008Q4

REPORT INFORMATION
  Report Type: 
  Country: None (occurrence: None)
  Receive Date: 20081013
  Receipt Date: 20081008
  Transmission Date: 20090506
  Serious: Yes (Hospitalization)
  Sender: FDA-Public Use
  Company Number: FR-BRISTOL-MYERS SQUIBB COMPANY-14361471

PATIENT
  Age: 74 Year
  Sex: Male

DRUGS (4)
  1. SINEMET CR [Suspect]
     Indication: PARKINSON'S DISEASE
     Dosage: 1 DOSAGE FORM=25MG/100MG
     Route: 048
     Dates: start: 20080318, end: 20080602
  2. SINEMET [Suspect]
     Indication: PARKINSON'S DISEASE
     Dosage: 1 DOSAGE FORM=1 TABLET
     Route: 048
     Dates: start: 20080318, end: 20080602
  3. MODOPAR [Concomitant]
  4. PERGOLIDE MESYLATE [Concomitant]

REACTIONS (4)
  - CARDIAC FAILURE [None]
  - DYSURIA [None]
  - GENERAL PHYSICAL HEALTH DETERIORATION [None]
  - HALLUCINATION, VISUAL [None]
